FAERS Safety Report 7808017-1 (Version None)
Quarter: 2011Q4

REPORT INFORMATION
  Report Type: 
  Country: None (occurrence: None)
  Receive Date: 20111011
  Receipt Date: 20111011
  Transmission Date: 20120403
  Serious: Yes (Other)
  Sender: FDA-Public Use
  Company Number: None

PATIENT
  Sex: Female
  Weight: 80.739 kg

DRUGS (2)
  1. COMBIGAN [Concomitant]
     Dosage: 1 DROP
     Dates: start: 20110711, end: 20110725
  2. ACETAZOLAMIDE [Suspect]
     Indication: INTRAOCULAR PRESSURE INCREASED
     Dosage: 1 TABLET
     Dates: start: 20110103, end: 20110209

REACTIONS (4)
  - DIZZINESS [None]
  - BALANCE DISORDER [None]
  - GAIT DISTURBANCE [None]
  - FEELING ABNORMAL [None]
